FAERS Safety Report 9459549 (Version 2)
Quarter: 2013Q3

REPORT INFORMATION
  Report Type: Spontaneous
  Country: US (occurrence: US)
  Receive Date: 20130815
  Receipt Date: 20130827
  Transmission Date: 20140515
  Serious: No
  Sender: FDA-Public Use
  Company Number: US-PFIZER INC-2013235288

PATIENT
  Age: 59 Year
  Sex: Female

DRUGS (13)
  1. CELEBREX [Suspect]
     Dosage: UNK
  2. LIPITOR [Suspect]
     Indication: HIGH DENSITY LIPOPROTEIN
     Dosage: UNK
     Route: 048
  3. TRICOR [Suspect]
     Indication: HIGH DENSITY LIPOPROTEIN
     Dosage: 48 MG, UNK
     Route: 048
     Dates: start: 20110615, end: 20110705
  4. CRESTOR [Suspect]
     Indication: HIGH DENSITY LIPOPROTEIN
     Dosage: UNK
     Route: 048
  5. PRAVACHOL [Suspect]
     Indication: HIGH DENSITY LIPOPROTEIN
     Dosage: UNK
     Route: 048
  6. ALBUTEROL [Concomitant]
     Dosage: UNK
  7. SYNTHROID [Concomitant]
     Dosage: UNK
  8. ZETIA [Concomitant]
     Dosage: 10 MG, UNK
  9. PLAVIX [Concomitant]
     Dosage: UNK
  10. FISH OIL [Concomitant]
     Dosage: UNK
  11. CALCIUM CITRATE [Concomitant]
     Dosage: UNK
  12. PROTONIX [Concomitant]
     Dosage: UNK
  13. IBUPROFEN [Concomitant]

REACTIONS (4)
  - Drug hypersensitivity [Unknown]
  - Myalgia [Recovered/Resolved]
  - Arthralgia [Recovered/Resolved]
  - Asthenia [Recovered/Resolved]
